FAERS Safety Report 10279076 (Version 2)
Quarter: 2014Q3

REPORT INFORMATION
  Report Type: Other
  Country: US (occurrence: US)
  Receive Date: 20140707
  Receipt Date: 20140707
  Transmission Date: 20150326
  Serious: No
  Sender: FDA-Public Use
  Company Number: US-LUPIN PHARMACEUTICALS INC.-E2B_00001688

PATIENT
  Age: 67 Year
  Sex: Female
  Weight: 68.1 kg

DRUGS (2)
  1. SIMVASTATIN TABLETS USP 20 MG [Suspect]
     Active Substance: SIMVASTATIN
     Dates: end: 20140123
  2. SIMVASTATIN TABLETS USP 20 MG [Suspect]
     Active Substance: SIMVASTATIN
     Indication: BLOOD CHOLESTEROL INCREASED
     Dates: start: 20131230

REACTIONS (7)
  - Fatigue [Recovered/Resolved]
  - Headache [Recovered/Resolved]
  - Fibromyalgia [Recovered/Resolved]
  - Arthralgia [Recovered/Resolved]
  - Pain [Recovered/Resolved]
  - Abnormal dreams [Recovered/Resolved]
  - Product substitution issue [Recovered/Resolved]

NARRATIVE: CASE EVENT DATE: 20131230
